FAERS Safety Report 11895792 (Version 1)
Quarter: 2016Q1

REPORT INFORMATION
  Report Type: Spontaneous
  Country: US (occurrence: US)
  Receive Date: 20160107
  Receipt Date: 20160107
  Transmission Date: 20160526
  Serious: Yes (Other)
  Sender: FDA-Public Use
  Company Number: US-CELGENE-USA-2015126764

PATIENT
  Age: 69 Year
  Sex: Female

DRUGS (6)
  1. DEXAMETHASONE. [Suspect]
     Active Substance: DEXAMETHASONE
     Indication: PLASMA CELL MYELOMA RECURRENT
     Route: 048
  2. ELOTUZUMAB [Suspect]
     Active Substance: ELOTUZUMAB
     Dosage: 40 MILLIGRAM
     Route: 041
  3. ELOTUZUMAB [Suspect]
     Active Substance: ELOTUZUMAB
     Route: 041
  4. REVLIMID [Suspect]
     Active Substance: LENALIDOMIDE
     Indication: PLASMA CELL MYELOMA RECURRENT
     Dosage: 25 MILLIGRAM
     Route: 048
  5. ELOTUZUMAB [Suspect]
     Active Substance: ELOTUZUMAB
     Indication: PLASMA CELL MYELOMA RECURRENT
     Route: 041
  6. ELOTUZUMAB [Suspect]
     Active Substance: ELOTUZUMAB
     Route: 041

REACTIONS (1)
  - Myelodysplastic syndrome [Unknown]
